FAERS Safety Report 12306900 (Version 1)
Quarter: 2016Q2

REPORT INFORMATION
  Report Type: Report from Study
  Country: US (occurrence: JP)
  Receive Date: 20160426
  Receipt Date: 20160426
  Transmission Date: 20160815
  Serious: Yes (Other)
  Sender: FDA-Public Use
  Company Number: JP-FRI-1000084174

PATIENT
  Age: 22 Year
  Sex: Male

DRUGS (8)
  1. FLORINEF ACETATE [Suspect]
     Active Substance: FLUDROCORTISONE ACETATE
     Dosage: 0.1 MG
     Route: 048
     Dates: start: 20140203, end: 20140204
  2. AVYCAZ [Suspect]
     Active Substance: AVIBACTAM SODIUM\CEFTAZIDIME
     Indication: PNEUMONIA
     Dosage: 2000/500 MG
     Route: 042
     Dates: start: 20140203
  3. FLORINEF ACETATE [Suspect]
     Active Substance: FLUDROCORTISONE ACETATE
     Dosage: 0.2 MG
     Route: 048
     Dates: start: 20140203, end: 20140204
  4. ESLAX [Concomitant]
     Active Substance: ROCURONIUM BROMIDE
     Dosage: 96 ML
     Route: 042
  5. SOLYUGEN F [Concomitant]
     Dosage: 1200 ML
     Route: 042
  6. ENTERONON-R [Concomitant]
     Active Substance: PROBIOTICS NOS
     Dosage: 3 GRAM
     Route: 048
     Dates: start: 20140204
  7. ENSURE [Concomitant]
     Active Substance: AMINO ACIDS\DEXTROSE\ELECTROLYTES NOS\SOYBEAN OIL\VITAMINS
     Dosage: 750 ML
     Route: 048
  8. PRECEDEX [Concomitant]
     Active Substance: DEXMEDETOMIDINE HYDROCHLORIDE
     Dosage: 120 ML
     Route: 042

REACTIONS (1)
  - Liver function test abnormal [Recovered/Resolved]

NARRATIVE: CASE EVENT DATE: 20140205
